FAERS Safety Report 9741791 (Version 1)
Quarter: 2013Q4

REPORT INFORMATION
  Report Type: Spontaneous
  Country: US (occurrence: US)
  Receive Date: 20131210
  Receipt Date: 20131210
  Transmission Date: 20140711
  Serious: No
  Sender: FDA-Public Use
  Company Number: US-009507513-1312USA002239

PATIENT
  Sex: Female

DRUGS (2)
  1. ZETIA [Suspect]
     Dosage: UNK
     Route: 048
  2. ZOCOR [Suspect]
     Dosage: UNK
     Route: 048

REACTIONS (2)
  - Amnesia [Unknown]
  - Drug interaction [Unknown]
